FAERS Safety Report 11611090 (Version 1)
Quarter: 2015Q4

REPORT INFORMATION
  Report Type: Spontaneous
  Country: US (occurrence: None)
  Receive Date: 20151007
  Receipt Date: 20151007
  Transmission Date: 20160304
  Serious: Yes (Hospitalization)
  Sender: FDA-Public Use
  Company Number: None

PATIENT
  Age: 61 Year
  Sex: Male
  Weight: 84.5 kg

DRUGS (1)
  1. ASPIRIN. [Suspect]
     Active Substance: ASPIRIN
     Indication: CEREBROVASCULAR ACCIDENT PROPHYLAXIS
     Route: 048
     Dates: start: 20000205, end: 20150909

REACTIONS (7)
  - Oesophagitis [None]
  - Depression [None]
  - Homicidal ideation [None]
  - Dysuria [None]
  - Haemoglobin decreased [None]
  - Gastric haemorrhage [None]
  - Oesophageal ulcer [None]

NARRATIVE: CASE EVENT DATE: 20150819
